FAERS Safety Report 16121871 (Version 1)
Quarter: 2019Q2

REPORT INFORMATION
  Report Type: Spontaneous
  Country: US (occurrence: US)
  Receive Date: 20190326
  Receipt Date: 20190326
  Transmission Date: 20190711
  Serious: Yes (Other)
  Sender: FDA-Public Use
  Company Number: None

PATIENT
  Age: 36 Year
  Sex: Female
  Weight: 70.65 kg

DRUGS (1)
  1. DEXTROAMPHET SACCHARAT, AMPHET ASPARTATE, DEXTROAMPHET SULFATE AND AMPHET SULFAT [Suspect]
     Active Substance: AMPHETAMINE ASPARTATE\AMPHETAMINE SULFATE\DEXTROAMPHETAMINE SACCHARATE\DEXTROAMPHETAMINE SULFATE
     Indication: ATTENTION DEFICIT/HYPERACTIVITY DISORDER
     Dosage: ?          QUANTITY:1 TABLET(S);?
     Route: 048
     Dates: start: 20190322

REACTIONS (11)
  - Seizure [None]
  - Abdominal distension [None]
  - Arthralgia [None]
  - Chromaturia [None]
  - Back pain [None]
  - Diarrhoea [None]
  - Insomnia [None]
  - Condition aggravated [None]
  - Vertigo [None]
  - Manufacturing issue [None]
  - Joint swelling [None]

NARRATIVE: CASE EVENT DATE: 20190322
